FAERS Safety Report 15102632 (Version 5)
Quarter: 2019Q4

REPORT INFORMATION
  Report Type: Spontaneous
  Country: US (occurrence: US)
  Receive Date: 20180703
  Receipt Date: 20191002
  Transmission Date: 20200122
  Serious: Yes (Hospitalization, Other)
  Sender: FDA-Public Use
  Company Number: US-SA-2018SA173097

PATIENT
  Age: 62 Year
  Sex: Female

DRUGS (12)
  1. NEURONTIN [Concomitant]
     Active Substance: GABAPENTIN
  2. VITAMIN D3 [Concomitant]
     Active Substance: CHOLECALCIFEROL
  3. AMPYRA [Concomitant]
     Active Substance: DALFAMPRIDINE
  4. AUBAGIO [Suspect]
     Active Substance: TERIFLUNOMIDE
     Indication: MULTIPLE SCLEROSIS
     Dosage: 1 DF, QD
     Route: 048
     Dates: start: 20130113, end: 20190603
  5. LASIX [Concomitant]
     Active Substance: FUROSEMIDE
  6. TRAZODONE [Concomitant]
     Active Substance: TRAZODONE HYDROCHLORIDE
  7. POTASSIUM [Concomitant]
     Active Substance: POTASSIUM
  8. DALFAMPRIDINE. [Concomitant]
     Active Substance: DALFAMPRIDINE
  9. ZOLADEX [Concomitant]
     Active Substance: GOSERELIN ACETATE
  10. ZANAFLEX [Concomitant]
     Active Substance: TIZANIDINE HYDROCHLORIDE
  11. BACLOFEN. [Concomitant]
     Active Substance: BACLOFEN
  12. LYRICA [Concomitant]
     Active Substance: PREGABALIN

REACTIONS (2)
  - Diarrhoea [Not Recovered/Not Resolved]
  - Multiple sclerosis relapse [Unknown]

NARRATIVE: CASE EVENT DATE: 20180614
